FAERS Safety Report 9316494 (Version 4)
Quarter: 2013Q3

REPORT INFORMATION
  Report Type: Spontaneous
  Country: JP (occurrence: JP)
  Receive Date: 20130530
  Receipt Date: 20130715
  Transmission Date: 20140515
  Serious: Yes (Death)
  Sender: FDA-Public Use
  Company Number: JP-JNJFOC-20130416192

PATIENT
  Age: 66 Year
  Sex: Female
  Weight: 55 kg

DRUGS (16)
  1. REMICADE [Suspect]
     Indication: COLITIS ULCERATIVE
     Dosage: FIRST INFUSION
     Route: 042
     Dates: start: 20130330
  2. REMICADE [Suspect]
     Indication: COLITIS ULCERATIVE
     Dosage: SECOND INFUSION
     Route: 042
     Dates: start: 20130413
  3. METHYCOBAL [Concomitant]
     Indication: PRODUCT USED FOR UNKNOWN INDICATION
     Route: 048
     Dates: start: 20101105
  4. URSO [Concomitant]
     Indication: CHRONIC HEPATITIS
     Route: 048
     Dates: start: 20071215
  5. BENZALIN [Concomitant]
     Indication: INSOMNIA
     Route: 048
     Dates: start: 20090208
  6. ALINAMIN F [Concomitant]
     Route: 048
     Dates: start: 20071218
  7. OPALMON [Concomitant]
     Route: 048
     Dates: start: 20101105
  8. SILECE [Concomitant]
     Indication: INSOMNIA
     Route: 048
     Dates: start: 20101112
  9. DOGMATYL [Concomitant]
     Indication: GASTRITIS
     Route: 048
     Dates: start: 20120427
  10. PENTASA [Concomitant]
     Indication: COLITIS ULCERATIVE
     Route: 048
     Dates: start: 20120929
  11. BIOFERMIN [Concomitant]
     Indication: DIARRHOEA
     Route: 048
     Dates: start: 20130304
  12. NEXIUM [Concomitant]
     Indication: GASTRIC ULCER
     Route: 048
     Dates: start: 20130304
  13. PREDONINE [Concomitant]
     Indication: COLITIS ULCERATIVE
     Route: 042
     Dates: start: 20130313
  14. RISPERDAL [Concomitant]
     Route: 048
     Dates: start: 20130316
  15. TETRAMIDE [Concomitant]
     Route: 048
     Dates: start: 20130316
  16. FUNGIZONE [Concomitant]
     Indication: OESOPHAGEAL CANDIDIASIS
     Route: 048
     Dates: start: 20130330

REACTIONS (1)
  - Interstitial lung disease [Fatal]
